FAERS Safety Report 24822913 (Version 7)
Quarter: 2025Q2

REPORT INFORMATION
  Report Type: Spontaneous
  Country: CA (occurrence: CA)
  Receive Date: 20250109
  Receipt Date: 20250623
  Transmission Date: 20250717
  Serious: Yes (Death, Life-Threatening, Hospitalization, Disabling, Congenital Anomaly, Other)
  Sender: Haleon PLC
  Company Number: CA-SANDOZ-SDZ2024CA096718

PATIENT
  Age: 40 Year
  Sex: Female
  Weight: 96 kg

DRUGS (567)
  1. VOLTAREN [Suspect]
     Active Substance: DICLOFENAC SODIUM
     Indication: Product used for unknown indication
  2. VOLTAREN [Suspect]
     Active Substance: DICLOFENAC SODIUM
  3. PHENYLEPHRINE HYDROCHLORIDE [Suspect]
     Active Substance: PHENYLEPHRINE HYDROCHLORIDE
     Indication: Rheumatoid arthritis
  4. DICLOFENAC SODIUM [Suspect]
     Active Substance: DICLOFENAC SODIUM
     Indication: Product used for unknown indication
  5. DICLOFENAC SODIUM [Suspect]
     Active Substance: DICLOFENAC SODIUM
  6. DICLOFENAC SODIUM [Suspect]
     Active Substance: DICLOFENAC SODIUM
  7. DICLOFENAC SODIUM [Suspect]
     Active Substance: DICLOFENAC SODIUM
  8. DICLOFENAC SODIUM [Suspect]
     Active Substance: DICLOFENAC SODIUM
  9. DICLOFENAC SODIUM [Suspect]
     Active Substance: DICLOFENAC SODIUM
  10. DICLOFENAC SODIUM [Suspect]
     Active Substance: DICLOFENAC SODIUM
     Route: 058
  11. ALENDRONATE SODIUM\CHOLECALCIFEROL [Suspect]
     Active Substance: ALENDRONATE SODIUM\CHOLECALCIFEROL
     Indication: Rheumatoid arthritis
  12. ALENDRONATE SODIUM\CHOLECALCIFEROL [Suspect]
     Active Substance: ALENDRONATE SODIUM\CHOLECALCIFEROL
  13. CALTRATE [Suspect]
     Active Substance: CALCIUM CARBONATE
     Indication: Product used for unknown indication
  14. HYDROCORTISONE SODIUM SUCCINATE [Suspect]
     Active Substance: HYDROCORTISONE SODIUM SUCCINATE
     Indication: Rheumatoid arthritis
     Route: 050
  15. HYDROCORTISONE SODIUM SUCCINATE [Suspect]
     Active Substance: HYDROCORTISONE SODIUM SUCCINATE
     Route: 058
  16. DIATRIZOATE MEGLUMINE [Suspect]
     Active Substance: DIATRIZOATE MEGLUMINE
     Indication: Product used for unknown indication
     Route: 050
  17. DIATRIZOATE MEGLUMINE [Suspect]
     Active Substance: DIATRIZOATE MEGLUMINE
     Route: 042
  18. MYOCHRYSINE [Suspect]
     Active Substance: GOLD SODIUM THIOMALATE
     Indication: Rheumatoid arthritis
     Route: 030
  19. MYOCHRYSINE [Suspect]
     Active Substance: GOLD SODIUM THIOMALATE
     Route: 030
  20. POVIDONE-IODINE [Suspect]
     Active Substance: POVIDONE-IODINE
     Indication: Product used for unknown indication
  21. POVIDONE-IODINE [Suspect]
     Active Substance: POVIDONE-IODINE
  22. IMURAN [Suspect]
     Active Substance: AZATHIOPRINE
     Indication: Product used for unknown indication
  23. IMURAN [Suspect]
     Active Substance: AZATHIOPRINE
  24. ERELZI [Suspect]
     Active Substance: ETANERCEPT-SZZS
     Indication: Rheumatoid arthritis
     Route: 058
  25. ERELZI [Suspect]
     Active Substance: ETANERCEPT-SZZS
  26. ERELZI [Suspect]
     Active Substance: ETANERCEPT-SZZS
  27. ERELZI [Suspect]
     Active Substance: ETANERCEPT-SZZS
     Route: 058
  28. ERELZI [Suspect]
     Active Substance: ETANERCEPT-SZZS
  29. ACETAMINOPHEN [Suspect]
     Active Substance: ACETAMINOPHEN
     Indication: Rheumatoid arthritis
  30. ACETAMINOPHEN [Suspect]
     Active Substance: ACETAMINOPHEN
  31. VITAMIN A ACETATE [Suspect]
     Active Substance: VITAMIN A ACETATE
     Indication: Product used for unknown indication
  32. VITAMIN A ACETATE [Suspect]
     Active Substance: VITAMIN A ACETATE
  33. CETIRIZINE [Suspect]
     Active Substance: CETIRIZINE HYDROCHLORIDE
     Indication: Rheumatoid arthritis
     Route: 048
  34. CETIRIZINE [Suspect]
     Active Substance: CETIRIZINE HYDROCHLORIDE
  35. CETIRIZINE [Suspect]
     Active Substance: CETIRIZINE HYDROCHLORIDE
     Route: 048
  36. TUMS REGULAR STRENGTH [Suspect]
     Active Substance: CALCIUM CARBONATE
     Indication: Product used for unknown indication
  37. VITAMIN D [Suspect]
     Active Substance: VITAMIN D NOS
     Indication: Product used for unknown indication
  38. VITAMIN D [Suspect]
     Active Substance: VITAMIN D NOS
  39. VOLTAROL [Suspect]
     Active Substance: DICLOFENAC SODIUM
     Indication: Product used for unknown indication
  40. VOLTAROL [Suspect]
     Active Substance: DICLOFENAC SODIUM
  41. METHOTREXATE [Suspect]
     Active Substance: METHOTREXATE
     Indication: Rheumatoid arthritis
     Dosage: 25 MG, QW
     Route: 058
  42. METHOTREXATE [Suspect]
     Active Substance: METHOTREXATE
     Dosage: 50 MG, QD
     Route: 048
  43. METHOTREXATE [Suspect]
     Active Substance: METHOTREXATE
     Route: 050
  44. METHOTREXATE [Suspect]
     Active Substance: METHOTREXATE
     Route: 048
  45. METHOTREXATE [Suspect]
     Active Substance: METHOTREXATE
  46. METHOTREXATE [Suspect]
     Active Substance: METHOTREXATE
     Route: 048
  47. METHOTREXATE [Suspect]
     Active Substance: METHOTREXATE
     Route: 048
  48. METHOTREXATE [Suspect]
     Active Substance: METHOTREXATE
     Dosage: 20 MG, QD
     Route: 048
  49. METHOTREXATE [Suspect]
     Active Substance: METHOTREXATE
     Dosage: 15 MG, QW
  50. METHOTREXATE [Suspect]
     Active Substance: METHOTREXATE
     Dosage: 25 MG, QW (CAPSULE)
  51. METHOTREXATE [Suspect]
     Active Substance: METHOTREXATE
     Route: 058
  52. METHOTREXATE [Suspect]
     Active Substance: METHOTREXATE
  53. METHOTREXATE [Suspect]
     Active Substance: METHOTREXATE
     Route: 058
  54. METHOTREXATE [Suspect]
     Active Substance: METHOTREXATE
     Dosage: 25 MG, QW
  55. METHOTREXATE [Suspect]
     Active Substance: METHOTREXATE
  56. METHOTREXATE [Suspect]
     Active Substance: METHOTREXATE
     Dosage: 20 MG, QW
     Route: 048
  57. METHOTREXATE [Suspect]
     Active Substance: METHOTREXATE
  58. METHOTREXATE [Suspect]
     Active Substance: METHOTREXATE
  59. METHOTREXATE [Suspect]
     Active Substance: METHOTREXATE
     Dosage: 25 MG, QW
     Route: 050
  60. METHOTREXATE [Suspect]
     Active Substance: METHOTREXATE
     Route: 048
  61. METHOTREXATE [Suspect]
     Active Substance: METHOTREXATE
     Dosage: 50 MG, QD
     Route: 048
  62. METHOTREXATE [Suspect]
     Active Substance: METHOTREXATE
     Dosage: 20 MG, QD
     Route: 048
  63. METHOTREXATE [Suspect]
     Active Substance: METHOTREXATE
     Route: 058
  64. METHOTREXATE [Suspect]
     Active Substance: METHOTREXATE
     Dosage: 25 MG, QW
     Route: 050
  65. METHOTREXATE [Suspect]
     Active Substance: METHOTREXATE
     Dosage: 20 MG, QW
     Route: 050
  66. METHOTREXATE [Suspect]
     Active Substance: METHOTREXATE
     Route: 050
  67. METHOTREXATE [Suspect]
     Active Substance: METHOTREXATE
     Dosage: 25 MG, QW
     Route: 058
  68. METHOTREXATE [Suspect]
     Active Substance: METHOTREXATE
     Dosage: 25 MG, QW
     Route: 050
  69. METHOTREXATE [Suspect]
     Active Substance: METHOTREXATE
     Route: 050
  70. METHOTREXATE [Suspect]
     Active Substance: METHOTREXATE
     Dosage: 25 MG, QD
     Route: 048
  71. METHOTREXATE [Suspect]
     Active Substance: METHOTREXATE
     Route: 013
  72. METHOTREXATE [Suspect]
     Active Substance: METHOTREXATE
     Dosage: 25 MG, QW
     Route: 050
  73. METHOTREXATE [Suspect]
     Active Substance: METHOTREXATE
     Dosage: 50 MG, QD
     Route: 048
  74. METFORMIN HYDROCHLORIDE [Suspect]
     Active Substance: METFORMIN HYDROCHLORIDE
     Indication: Product used for unknown indication
     Route: 050
  75. METFORMIN HYDROCHLORIDE [Suspect]
     Active Substance: METFORMIN HYDROCHLORIDE
  76. TOPIRAMATE [Suspect]
     Active Substance: TOPIRAMATE
     Indication: Migraine
     Dosage: 3 MG, QD
  77. TOPIRAMATE [Suspect]
     Active Substance: TOPIRAMATE
     Dosage: 25 MG, QD
  78. TOPIRAMATE [Suspect]
     Active Substance: TOPIRAMATE
     Dosage: 25 MG, QD
  79. TRAMADOL HYDROCHLORIDE [Suspect]
     Active Substance: TRAMADOL HYDROCHLORIDE
     Indication: Product used for unknown indication
  80. TRAMADOL HYDROCHLORIDE [Suspect]
     Active Substance: TRAMADOL HYDROCHLORIDE
  81. INFLIXIMAB [Suspect]
     Active Substance: INFLIXIMAB
     Indication: Rheumatoid arthritis
     Route: 042
  82. INFLIXIMAB [Suspect]
     Active Substance: INFLIXIMAB
     Route: 042
  83. INFLIXIMAB [Suspect]
     Active Substance: INFLIXIMAB
     Route: 042
  84. INFLIXIMAB [Suspect]
     Active Substance: INFLIXIMAB
     Route: 058
  85. INFLIXIMAB [Suspect]
     Active Substance: INFLIXIMAB
     Route: 058
  86. INFLIXIMAB [Suspect]
     Active Substance: INFLIXIMAB
     Dosage: 500 MG, QD
     Route: 042
  87. INFLIXIMAB [Suspect]
     Active Substance: INFLIXIMAB
  88. TRIAMCINOLONE ACETONIDE [Suspect]
     Active Substance: TRIAMCINOLONE ACETONIDE
     Indication: Rheumatoid arthritis
     Route: 050
  89. TRIAMCINOLONE ACETONIDE [Suspect]
     Active Substance: TRIAMCINOLONE ACETONIDE
     Route: 014
  90. OXYCODONE [Suspect]
     Active Substance: OXYCODONE
     Indication: Product used for unknown indication
  91. OXYCODONE [Suspect]
     Active Substance: OXYCODONE
  92. OXYCODONE [Suspect]
     Active Substance: OXYCODONE
  93. RAMIPRIL [Suspect]
     Active Substance: RAMIPRIL
     Indication: Rheumatoid arthritis
  94. RAMIPRIL [Suspect]
     Active Substance: RAMIPRIL
     Route: 042
  95. RAMIPRIL [Suspect]
     Active Substance: RAMIPRIL
     Route: 050
  96. RAMIPRIL [Suspect]
     Active Substance: RAMIPRIL
     Route: 050
  97. RAMIPRIL [Suspect]
     Active Substance: RAMIPRIL
     Route: 050
  98. RAMIPRIL [Suspect]
     Active Substance: RAMIPRIL
     Route: 016
  99. ALENDRONATE SODIUM [Suspect]
     Active Substance: ALENDRONATE SODIUM
     Indication: Rheumatoid arthritis
     Route: 050
  100. ALENDRONATE SODIUM [Suspect]
     Active Substance: ALENDRONATE SODIUM
     Route: 048
  101. ALENDRONATE SODIUM [Suspect]
     Active Substance: ALENDRONATE SODIUM
     Route: 048
  102. ALENDRONATE SODIUM [Suspect]
     Active Substance: ALENDRONATE SODIUM
  103. ALENDRONATE SODIUM [Suspect]
     Active Substance: ALENDRONATE SODIUM
  104. ALENDRONATE SODIUM [Suspect]
     Active Substance: ALENDRONATE SODIUM
     Route: 050
  105. ALENDRONATE SODIUM [Suspect]
     Active Substance: ALENDRONATE SODIUM
  106. CANDESARTAN [Suspect]
     Active Substance: CANDESARTAN
     Indication: Migraine
     Route: 050
  107. CANDESARTAN [Suspect]
     Active Substance: CANDESARTAN
     Route: 048
  108. ADALIMUMAB [Suspect]
     Active Substance: ADALIMUMAB
     Indication: Rheumatoid arthritis
     Route: 058
  109. ADALIMUMAB [Suspect]
     Active Substance: ADALIMUMAB
     Route: 050
  110. ADALIMUMAB [Suspect]
     Active Substance: ADALIMUMAB
     Route: 050
  111. ADALIMUMAB [Suspect]
     Active Substance: ADALIMUMAB
     Route: 050
  112. ADALIMUMAB [Suspect]
     Active Substance: ADALIMUMAB
     Route: 058
  113. ADALIMUMAB [Suspect]
     Active Substance: ADALIMUMAB
     Route: 058
  114. AIMOVIG [Suspect]
     Active Substance: ERENUMAB-AOOE
     Indication: Migraine
  115. AIMOVIG [Suspect]
     Active Substance: ERENUMAB-AOOE
  116. AIMOVIG [Suspect]
     Active Substance: ERENUMAB-AOOE
  117. AIMOVIG [Suspect]
     Active Substance: ERENUMAB-AOOE
  118. AIMOVIG [Suspect]
     Active Substance: ERENUMAB-AOOE
  119. RITUXIMAB [Suspect]
     Active Substance: RITUXIMAB
     Indication: Rheumatoid arthritis
     Dosage: 2000 MG, QD
  120. RITUXIMAB [Suspect]
     Active Substance: RITUXIMAB
     Route: 050
  121. RITUXIMAB [Suspect]
     Active Substance: RITUXIMAB
  122. RITUXIMAB [Suspect]
     Active Substance: RITUXIMAB
  123. RITUXIMAB [Suspect]
     Active Substance: RITUXIMAB
     Route: 050
  124. RITUXIMAB [Suspect]
     Active Substance: RITUXIMAB
     Route: 050
  125. RITUXIMAB [Suspect]
     Active Substance: RITUXIMAB
     Route: 050
  126. RITUXIMAB [Suspect]
     Active Substance: RITUXIMAB
     Route: 058
  127. RITUXIMAB [Suspect]
     Active Substance: RITUXIMAB
     Route: 058
  128. RITUXIMAB [Suspect]
     Active Substance: RITUXIMAB
     Dosage: 365 MG QD
  129. RITUXIMAB [Suspect]
     Active Substance: RITUXIMAB
     Route: 050
  130. RITUXIMAB [Suspect]
     Active Substance: RITUXIMAB
     Route: 042
  131. RITUXIMAB [Suspect]
     Active Substance: RITUXIMAB
     Route: 042
  132. RITUXIMAB [Suspect]
     Active Substance: RITUXIMAB
     Route: 042
  133. RITUXIMAB [Suspect]
     Active Substance: RITUXIMAB
     Route: 043
  134. RITUXIMAB [Suspect]
     Active Substance: RITUXIMAB
     Route: 042
  135. RITUXIMAB [Suspect]
     Active Substance: RITUXIMAB
     Route: 016
  136. RITUXIMAB [Suspect]
     Active Substance: RITUXIMAB
     Route: 042
  137. RITUXIMAB [Suspect]
     Active Substance: RITUXIMAB
     Dosage: 2000 MG, QD
  138. RITUXIMAB [Suspect]
     Active Substance: RITUXIMAB
     Dosage: 2G, QD
     Route: 042
  139. RITUXIMAB [Suspect]
     Active Substance: RITUXIMAB
     Dosage: 2 G, QD
     Route: 042
  140. RITUXIMAB [Suspect]
     Active Substance: RITUXIMAB
     Route: 050
  141. RITUXIMAB [Suspect]
     Active Substance: RITUXIMAB
     Route: 050
  142. RITUXIMAB [Suspect]
     Active Substance: RITUXIMAB
     Route: 050
  143. RITUXIMAB [Suspect]
     Active Substance: RITUXIMAB
     Route: 042
  144. RITUXIMAB [Suspect]
     Active Substance: RITUXIMAB
     Route: 050
  145. RITUXIMAB [Suspect]
     Active Substance: RITUXIMAB
     Route: 058
  146. RITUXIMAB [Suspect]
     Active Substance: RITUXIMAB
     Route: 043
  147. RITUXIMAB [Suspect]
     Active Substance: RITUXIMAB
     Route: 058
  148. RITUXIMAB [Suspect]
     Active Substance: RITUXIMAB
     Route: 016
  149. RITUXIMAB [Suspect]
     Active Substance: RITUXIMAB
     Route: 043
  150. RITUXIMAB [Suspect]
     Active Substance: RITUXIMAB
     Dosage: INTRAVENOUS BOLUS
  151. RITUXIMAB [Suspect]
     Active Substance: RITUXIMAB
     Route: 050
  152. RITUXIMAB [Suspect]
     Active Substance: RITUXIMAB
     Route: 058
  153. RITUXIMAB [Suspect]
     Active Substance: RITUXIMAB
     Dosage: 2000 MG, QD
  154. RITUXIMAB [Suspect]
     Active Substance: RITUXIMAB
     Dosage: 2000 MG, QD
  155. RITUXIMAB [Suspect]
     Active Substance: RITUXIMAB
  156. RITUXIMAB [Suspect]
     Active Substance: RITUXIMAB
     Route: 043
  157. RITUXIMAB [Suspect]
     Active Substance: RITUXIMAB
     Route: 042
  158. RITUXIMAB [Suspect]
     Active Substance: RITUXIMAB
     Route: 042
  159. RITUXIMAB [Suspect]
     Active Substance: RITUXIMAB
     Dosage: 2 G, QD
     Route: 042
  160. RITUXIMAB [Suspect]
     Active Substance: RITUXIMAB
     Dosage: 2 G, QD
     Route: 042
  161. RITUXIMAB [Suspect]
     Active Substance: RITUXIMAB
  162. RITUXIMAB [Suspect]
     Active Substance: RITUXIMAB
     Route: 050
  163. RITUXIMAB [Suspect]
     Active Substance: RITUXIMAB
     Route: 050
  164. RITUXIMAB [Suspect]
     Active Substance: RITUXIMAB
     Route: 050
  165. RITUXIMAB [Suspect]
     Active Substance: RITUXIMAB
     Route: 050
  166. RITUXIMAB [Suspect]
     Active Substance: RITUXIMAB
  167. THIAMINE HYDROCHLORIDE [Suspect]
     Active Substance: THIAMINE HYDROCHLORIDE
     Indication: Product used for unknown indication
  168. APREMILAST [Suspect]
     Active Substance: APREMILAST
     Indication: Rheumatoid arthritis
     Dosage: 6 MG, QD
  169. APREMILAST [Suspect]
     Active Substance: APREMILAST
     Dosage: 3 MG, Q12H
  170. APREMILAST [Suspect]
     Active Substance: APREMILAST
     Dosage: 3 MG, 2 EVERY 1 DAYS
  171. APREMILAST [Suspect]
     Active Substance: APREMILAST
  172. APREMILAST [Suspect]
     Active Substance: APREMILAST
  173. ATOMOXETINE HYDROCHLORIDE [Suspect]
     Active Substance: ATOMOXETINE HYDROCHLORIDE
     Indication: Migraine
  174. FLUMETHASONE PIVALATE [Suspect]
     Active Substance: FLUMETHASONE PIVALATE
     Indication: Product used for unknown indication
     Route: 058
  175. FLUMETHASONE PIVALATE [Suspect]
     Active Substance: FLUMETHASONE PIVALATE
  176. FLUMETHASONE PIVALATE [Suspect]
     Active Substance: FLUMETHASONE PIVALATE
  177. FLUMETHASONE PIVALATE [Suspect]
     Active Substance: FLUMETHASONE PIVALATE
     Route: 058
  178. HYDROCORTISONE ACETATE [Suspect]
     Active Substance: HYDROCORTISONE ACETATE
     Indication: Rheumatoid arthritis
  179. HYDROCORTISONE ACETATE [Suspect]
     Active Substance: HYDROCORTISONE ACETATE
  180. HYDROCORTISONE ACETATE [Suspect]
     Active Substance: HYDROCORTISONE ACETATE
  181. HYDROCORTISONE ACETATE [Suspect]
     Active Substance: HYDROCORTISONE ACETATE
  182. HYDROCORTISONE ACETATE [Suspect]
     Active Substance: HYDROCORTISONE ACETATE
  183. ACTEMRA [Suspect]
     Active Substance: TOCILIZUMAB
     Indication: Rheumatoid arthritis
     Route: 042
  184. ACTEMRA [Suspect]
     Active Substance: TOCILIZUMAB
     Route: 042
  185. ACTEMRA [Suspect]
     Active Substance: TOCILIZUMAB
     Route: 042
  186. ACTEMRA [Suspect]
     Active Substance: TOCILIZUMAB
     Route: 042
  187. ACTEMRA [Suspect]
     Active Substance: TOCILIZUMAB
     Route: 042
  188. ACTEMRA [Suspect]
     Active Substance: TOCILIZUMAB
  189. ACTEMRA [Suspect]
     Active Substance: TOCILIZUMAB
  190. ACTEMRA [Suspect]
     Active Substance: TOCILIZUMAB
     Route: 042
  191. ACTEMRA [Suspect]
     Active Substance: TOCILIZUMAB
     Route: 058
  192. ACTEMRA [Suspect]
     Active Substance: TOCILIZUMAB
     Route: 058
  193. ACTEMRA [Suspect]
     Active Substance: TOCILIZUMAB
     Route: 058
  194. ACTEMRA [Suspect]
     Active Substance: TOCILIZUMAB
     Route: 058
  195. ACTEMRA [Suspect]
     Active Substance: TOCILIZUMAB
     Route: 058
  196. ACTEMRA [Suspect]
     Active Substance: TOCILIZUMAB
     Dosage: 25 MG, QW
     Route: 058
  197. ACTEMRA [Suspect]
     Active Substance: TOCILIZUMAB
     Route: 058
  198. ACTEMRA [Suspect]
     Active Substance: TOCILIZUMAB
  199. ACTEMRA [Suspect]
     Active Substance: TOCILIZUMAB
     Route: 042
  200. ACTEMRA [Suspect]
     Active Substance: TOCILIZUMAB
     Route: 065
  201. ACTEMRA [Suspect]
     Active Substance: TOCILIZUMAB
     Route: 058
  202. ACTEMRA [Suspect]
     Active Substance: TOCILIZUMAB
     Route: 058
  203. ACTEMRA [Suspect]
     Active Substance: TOCILIZUMAB
     Route: 058
  204. ACTEMRA [Suspect]
     Active Substance: TOCILIZUMAB
     Route: 042
  205. BERINERT [Suspect]
     Active Substance: HUMAN C1-ESTERASE INHIBITOR
     Indication: Product used for unknown indication
  206. BERINERT [Suspect]
     Active Substance: HUMAN C1-ESTERASE INHIBITOR
  207. BERINERT [Suspect]
     Active Substance: HUMAN C1-ESTERASE INHIBITOR
  208. BOTULINUM TOXIN TYPE A [Suspect]
     Active Substance: BOTULINUM TOXIN TYPE A
     Indication: Product used for unknown indication
  209. BOTULINUM TOXIN TYPE A [Suspect]
     Active Substance: BOTULINUM TOXIN TYPE A
  210. BUTRANS [Suspect]
     Active Substance: BUPRENORPHINE
     Indication: Product used for unknown indication
  211. BUTRANS [Suspect]
     Active Substance: BUPRENORPHINE
  212. CALCIUM ASCORBATE [Suspect]
     Active Substance: CALCIUM ASCORBATE
     Indication: Product used for unknown indication
  213. CALCIUM ASCORBATE [Suspect]
     Active Substance: CALCIUM ASCORBATE
  214. CALCIUM GLUBIONATE [Suspect]
     Active Substance: CALCIUM GLUBIONATE
     Indication: Product used for unknown indication
  215. CALCIUM GLUBIONATE [Suspect]
     Active Substance: CALCIUM GLUBIONATE
  216. CELEBREX [Suspect]
     Active Substance: CELECOXIB
     Indication: Product used for unknown indication
     Dosage: 1 DOSAGE FORM, QD
  217. CELEBREX [Suspect]
     Active Substance: CELECOXIB
     Dosage: 2 DOSAGE FORM, QD
     Route: 048
  218. CIMZIA [Suspect]
     Active Substance: CERTOLIZUMAB PEGOL
     Indication: Rheumatoid arthritis
  219. CIMZIA [Suspect]
     Active Substance: CERTOLIZUMAB PEGOL
     Indication: Psoriasis
  220. CIMZIA [Suspect]
     Active Substance: CERTOLIZUMAB PEGOL
     Route: 058
  221. CIMZIA [Suspect]
     Active Substance: CERTOLIZUMAB PEGOL
     Route: 058
  222. CIMZIA [Suspect]
     Active Substance: CERTOLIZUMAB PEGOL
     Route: 058
  223. CIMZIA [Suspect]
     Active Substance: CERTOLIZUMAB PEGOL
     Route: 058
  224. CIMZIA [Suspect]
     Active Substance: CERTOLIZUMAB PEGOL
     Route: 058
  225. CIMZIA [Suspect]
     Active Substance: CERTOLIZUMAB PEGOL
     Route: 058
  226. CIMZIA [Suspect]
     Active Substance: CERTOLIZUMAB PEGOL
     Route: 058
  227. CIMZIA [Suspect]
     Active Substance: CERTOLIZUMAB PEGOL
  228. CIMZIA [Suspect]
     Active Substance: CERTOLIZUMAB PEGOL
  229. CORTISONE ACETATE [Suspect]
     Active Substance: CORTISONE ACETATE
     Indication: Rheumatoid arthritis
  230. CORTISONE ACETATE [Suspect]
     Active Substance: CORTISONE ACETATE
  231. CORTISONE ACETATE [Suspect]
     Active Substance: CORTISONE ACETATE
     Route: 058
  232. DOMPERIDONE MALEATE [Suspect]
     Active Substance: DOMPERIDONE MALEATE
     Indication: Product used for unknown indication
  233. DOMPERIDONE MALEATE [Suspect]
     Active Substance: DOMPERIDONE MALEATE
  234. DOMPERIDONE MALEATE [Suspect]
     Active Substance: DOMPERIDONE MALEATE
  235. ERGOCALCIFEROL [Suspect]
     Active Substance: ERGOCALCIFEROL
     Indication: Product used for unknown indication
  236. RIBOFLAVIN [Suspect]
     Active Substance: RIBOFLAVIN
     Indication: Product used for unknown indication
  237. FOSAMAX [Suspect]
     Active Substance: ALENDRONATE SODIUM
     Indication: Rheumatoid arthritis
     Route: 048
  238. FOSAMAX [Suspect]
     Active Substance: ALENDRONATE SODIUM
     Route: 048
  239. FOSAMAX [Suspect]
     Active Substance: ALENDRONATE SODIUM
  240. FOSAMAX [Suspect]
     Active Substance: ALENDRONATE SODIUM
  241. GOLD SODIUM THIOMALATE [Suspect]
     Active Substance: GOLD SODIUM THIOMALATE
     Indication: Product used for unknown indication
  242. GOLD SODIUM THIOMALATE [Suspect]
     Active Substance: GOLD SODIUM THIOMALATE
  243. GOLIMUMAB [Suspect]
     Active Substance: GOLIMUMAB
     Indication: Rheumatoid arthritis
  244. GOLIMUMAB [Suspect]
     Active Substance: GOLIMUMAB
     Indication: Prostatic specific antigen
  245. GOLIMUMAB [Suspect]
     Active Substance: GOLIMUMAB
     Route: 058
  246. GOLIMUMAB [Suspect]
     Active Substance: GOLIMUMAB
     Route: 058
  247. GOLIMUMAB [Suspect]
     Active Substance: GOLIMUMAB
     Route: 058
  248. GOLIMUMAB [Suspect]
     Active Substance: GOLIMUMAB
  249. GOLIMUMAB [Suspect]
     Active Substance: GOLIMUMAB
     Route: 058
  250. HUMIRA [Suspect]
     Active Substance: ADALIMUMAB
     Indication: Rheumatoid arthritis
  251. HUMIRA [Suspect]
     Active Substance: ADALIMUMAB
  252. HUMIRA [Suspect]
     Active Substance: ADALIMUMAB
  253. HUMIRA [Suspect]
     Active Substance: ADALIMUMAB
  254. HYDROXYCHLOROQUINE SULFATE [Suspect]
     Active Substance: HYDROXYCHLOROQUINE SULFATE
     Indication: Rheumatoid arthritis
  255. HYDROXYCHLOROQUINE SULFATE [Suspect]
     Active Substance: HYDROXYCHLOROQUINE SULFATE
  256. HYDROXYCHLOROQUINE SULFATE [Suspect]
     Active Substance: HYDROXYCHLOROQUINE SULFATE
  257. ISOPROPYL ALCOHOL [Suspect]
     Active Substance: ISOPROPYL ALCOHOL
     Indication: Product used for unknown indication
  258. ISOPROPYL ALCOHOL [Suspect]
     Active Substance: ISOPROPYL ALCOHOL
  259. LAMICTAL [Suspect]
     Active Substance: LAMOTRIGINE
     Indication: Product used for unknown indication
     Route: 048
  260. LAMICTAL [Suspect]
     Active Substance: LAMOTRIGINE
     Route: 048
  261. MAGNESIUM CITRATE [Suspect]
     Active Substance: MAGNESIUM CITRATE
     Indication: Product used for unknown indication
  262. MAGNESIUM CITRATE [Suspect]
     Active Substance: MAGNESIUM CITRATE
  263. METHYLPREDNISOLONE SODIUM SUCCINATE [Suspect]
     Active Substance: METHYLPREDNISOLONE SODIUM SUCCINATE
     Indication: Product used for unknown indication
  264. METHYLPREDNISOLONE SODIUM SUCCINATE [Suspect]
     Active Substance: METHYLPREDNISOLONE SODIUM SUCCINATE
  265. METHYLPREDNISOLONE SODIUM SUCCINATE [Suspect]
     Active Substance: METHYLPREDNISOLONE SODIUM SUCCINATE
  266. METHYLPREDNISOLONE SODIUM SUCCINATE [Suspect]
     Active Substance: METHYLPREDNISOLONE SODIUM SUCCINATE
  267. METHYLPREDNISOLONE SODIUM SUCCINATE [Suspect]
     Active Substance: METHYLPREDNISOLONE SODIUM SUCCINATE
  268. METHYLPREDNISOLONE SODIUM SUCCINATE [Suspect]
     Active Substance: METHYLPREDNISOLONE SODIUM SUCCINATE
  269. METHYLPREDNISOLONE SODIUM SUCCINATE [Suspect]
     Active Substance: METHYLPREDNISOLONE SODIUM SUCCINATE
  270. LEFLUNOMIDE [Suspect]
     Active Substance: LEFLUNOMIDE
     Indication: Rheumatoid arthritis
     Route: 048
  271. LEFLUNOMIDE [Suspect]
     Active Substance: LEFLUNOMIDE
  272. LEFLUNOMIDE [Suspect]
     Active Substance: LEFLUNOMIDE
  273. LEFLUNOMIDE [Suspect]
     Active Substance: LEFLUNOMIDE
     Route: 048
  274. LEFLUNOMIDE [Suspect]
     Active Substance: LEFLUNOMIDE
     Dosage: 20 MG, QD
  275. LEFLUNOMIDE [Suspect]
     Active Substance: LEFLUNOMIDE
     Dosage: 10 MG, QD
     Route: 048
  276. LEFLUNOMIDE [Suspect]
     Active Substance: LEFLUNOMIDE
     Route: 048
  277. LEFLUNOMIDE [Suspect]
     Active Substance: LEFLUNOMIDE
     Dosage: 10 MG, QD
     Route: 048
  278. LEFLUNOMIDE [Suspect]
     Active Substance: LEFLUNOMIDE
  279. LEFLUNOMIDE [Suspect]
     Active Substance: LEFLUNOMIDE
  280. LEFLUNOMIDE [Suspect]
     Active Substance: LEFLUNOMIDE
  281. LEFLUNOMIDE [Suspect]
     Active Substance: LEFLUNOMIDE
     Route: 048
  282. LEFLUNOMIDE [Suspect]
     Active Substance: LEFLUNOMIDE
  283. LEFLUNOMIDE [Suspect]
     Active Substance: LEFLUNOMIDE
  284. LEFLUNOMIDE [Suspect]
     Active Substance: LEFLUNOMIDE
     Route: 048
  285. FOLIC ACID [Suspect]
     Active Substance: FOLIC ACID
     Indication: Rheumatoid arthritis
     Route: 050
  286. FOLIC ACID [Suspect]
     Active Substance: FOLIC ACID
  287. FOLIC ACID [Suspect]
     Active Substance: FOLIC ACID
  288. FOLIC ACID [Suspect]
     Active Substance: FOLIC ACID
     Route: 050
  289. FOLIC ACID [Suspect]
     Active Substance: FOLIC ACID
     Route: 050
  290. FOLIC ACID [Suspect]
     Active Substance: FOLIC ACID
     Route: 050
  291. PREDNISONE [Suspect]
     Active Substance: PREDNISONE
     Indication: Rheumatoid arthritis
     Route: 048
  292. PREDNISONE [Suspect]
     Active Substance: PREDNISONE
  293. PREDNISONE [Suspect]
     Active Substance: PREDNISONE
  294. PREDNISONE [Suspect]
     Active Substance: PREDNISONE
     Dosage: 20 MG, QD
     Route: 048
  295. PREDNISONE [Suspect]
     Active Substance: PREDNISONE
     Dosage: 50MG, QD
     Route: 048
  296. PREDNISONE [Suspect]
     Active Substance: PREDNISONE
  297. PREDNISONE [Suspect]
     Active Substance: PREDNISONE
     Route: 048
  298. PREDNISONE [Suspect]
     Active Substance: PREDNISONE
     Route: 048
  299. PREDNISONE [Suspect]
     Active Substance: PREDNISONE
  300. PREDNISONE [Suspect]
     Active Substance: PREDNISONE
  301. ARAVA [Suspect]
     Active Substance: LEFLUNOMIDE
     Indication: Rheumatoid arthritis
     Dosage: 20 MG, QD
     Route: 048
  302. ARAVA [Suspect]
     Active Substance: LEFLUNOMIDE
     Route: 050
  303. ARAVA [Suspect]
     Active Substance: LEFLUNOMIDE
     Route: 048
  304. ARAVA [Suspect]
     Active Substance: LEFLUNOMIDE
     Route: 048
  305. DESOXIMETASONE [Suspect]
     Active Substance: DESOXIMETASONE
     Indication: Rheumatoid arthritis
     Route: 058
  306. DESOXIMETASONE [Suspect]
     Active Substance: DESOXIMETASONE
     Route: 058
  307. DESOXIMETASONE [Suspect]
     Active Substance: DESOXIMETASONE
     Route: 048
  308. DESOXIMETASONE [Suspect]
     Active Substance: DESOXIMETASONE
     Route: 058
  309. DESOXIMETASONE [Suspect]
     Active Substance: DESOXIMETASONE
     Route: 048
  310. DESOXIMETASONE [Suspect]
     Active Substance: DESOXIMETASONE
     Route: 058
  311. DESOXIMETASONE [Suspect]
     Active Substance: DESOXIMETASONE
     Route: 058
  312. DESOXIMETASONE [Suspect]
     Active Substance: DESOXIMETASONE
     Route: 048
  313. DESOXIMETASONE [Suspect]
     Active Substance: DESOXIMETASONE
     Route: 048
  314. DESOXIMETASONE [Suspect]
     Active Substance: DESOXIMETASONE
     Route: 058
  315. DESOXIMETASONE [Suspect]
     Active Substance: DESOXIMETASONE
     Route: 048
  316. DESOXIMETASONE [Suspect]
     Active Substance: DESOXIMETASONE
     Route: 058
  317. DESOXIMETASONE [Suspect]
     Active Substance: DESOXIMETASONE
     Route: 058
  318. DESOXIMETASONE [Suspect]
     Active Substance: DESOXIMETASONE
     Route: 048
  319. DESOXIMETASONE [Suspect]
     Active Substance: DESOXIMETASONE
     Route: 048
  320. DESOXIMETASONE [Suspect]
     Active Substance: DESOXIMETASONE
     Route: 048
  321. DESOXIMETASONE [Suspect]
     Active Substance: DESOXIMETASONE
     Route: 058
  322. DESOXIMETASONE [Suspect]
     Active Substance: DESOXIMETASONE
  323. DESOXIMETASONE [Suspect]
     Active Substance: DESOXIMETASONE
     Route: 048
  324. DESOXIMETASONE [Suspect]
     Active Substance: DESOXIMETASONE
     Route: 058
  325. DESOXIMETASONE [Suspect]
     Active Substance: DESOXIMETASONE
     Route: 058
  326. DESOXIMETASONE [Suspect]
     Active Substance: DESOXIMETASONE
     Route: 058
  327. DESOXIMETASONE [Suspect]
     Active Substance: DESOXIMETASONE
     Route: 048
  328. ENBREL [Suspect]
     Active Substance: ETANERCEPT
     Indication: Rheumatoid arthritis
     Route: 058
  329. ENBREL [Suspect]
     Active Substance: ETANERCEPT
  330. ENBREL [Suspect]
     Active Substance: ETANERCEPT
     Route: 058
  331. ENBREL [Suspect]
     Active Substance: ETANERCEPT
     Route: 058
  332. ENBREL [Suspect]
     Active Substance: ETANERCEPT
     Route: 058
  333. ENBREL [Suspect]
     Active Substance: ETANERCEPT
     Dosage: 50 MG, QD
     Route: 058
  334. ENBREL [Suspect]
     Active Substance: ETANERCEPT
  335. ENBREL [Suspect]
     Active Substance: ETANERCEPT
  336. ENBREL [Suspect]
     Active Substance: ETANERCEPT
     Dosage: 10 MG, QD
  337. ENBREL [Suspect]
     Active Substance: ETANERCEPT
     Route: 058
  338. ENBREL [Suspect]
     Active Substance: ETANERCEPT
     Route: 058
  339. ENBREL [Suspect]
     Active Substance: ETANERCEPT
     Route: 058
  340. ENBREL [Suspect]
     Active Substance: ETANERCEPT
     Route: 058
  341. AZATHIOPRINE [Suspect]
     Active Substance: AZATHIOPRINE
     Indication: Product used for unknown indication
  342. AZATHIOPRINE [Suspect]
     Active Substance: AZATHIOPRINE
  343. HYDROXYCHLOROQUINE [Suspect]
     Active Substance: HYDROXYCHLOROQUINE
     Indication: Rheumatoid arthritis
     Dosage: 400 MG, QD
     Route: 048
  344. HYDROXYCHLOROQUINE [Suspect]
     Active Substance: HYDROXYCHLOROQUINE
  345. HYDROXYCHLOROQUINE [Suspect]
     Active Substance: HYDROXYCHLOROQUINE
     Route: 058
  346. HYDROXYCHLOROQUINE [Suspect]
     Active Substance: HYDROXYCHLOROQUINE
     Route: 048
  347. HYDROXYCHLOROQUINE [Suspect]
     Active Substance: HYDROXYCHLOROQUINE
     Route: 048
  348. HYDROXYCHLOROQUINE [Suspect]
     Active Substance: HYDROXYCHLOROQUINE
     Route: 048
  349. HYDROXYCHLOROQUINE [Suspect]
     Active Substance: HYDROXYCHLOROQUINE
  350. HYDROXYCHLOROQUINE [Suspect]
     Active Substance: HYDROXYCHLOROQUINE
  351. HYDROXYCHLOROQUINE [Suspect]
     Active Substance: HYDROXYCHLOROQUINE
     Route: 048
  352. HYDROXYCHLOROQUINE [Suspect]
     Active Substance: HYDROXYCHLOROQUINE
     Route: 058
  353. HYDROXYCHLOROQUINE [Suspect]
     Active Substance: HYDROXYCHLOROQUINE
  354. HYDROXYCHLOROQUINE [Suspect]
     Active Substance: HYDROXYCHLOROQUINE
  355. HYDROXYCHLOROQUINE [Suspect]
     Active Substance: HYDROXYCHLOROQUINE
     Route: 058
  356. HYDROXYCHLOROQUINE [Suspect]
     Active Substance: HYDROXYCHLOROQUINE
     Route: 048
  357. HYDROXYCHLOROQUINE [Suspect]
     Active Substance: HYDROXYCHLOROQUINE
     Route: 048
  358. HYDROXYCHLOROQUINE [Suspect]
     Active Substance: HYDROXYCHLOROQUINE
  359. HYDROXYCHLOROQUINE [Suspect]
     Active Substance: HYDROXYCHLOROQUINE
  360. HYDROXYCHLOROQUINE [Suspect]
     Active Substance: HYDROXYCHLOROQUINE
  361. HYDROXYCHLOROQUINE [Suspect]
     Active Substance: HYDROXYCHLOROQUINE
     Dosage: 40 MG, QD
  362. HYDROXYCHLOROQUINE [Suspect]
     Active Substance: HYDROXYCHLOROQUINE
     Route: 048
  363. HYDROXYCHLOROQUINE [Suspect]
     Active Substance: HYDROXYCHLOROQUINE
     Route: 048
  364. HYDROXYCHLOROQUINE [Suspect]
     Active Substance: HYDROXYCHLOROQUINE
     Route: 048
  365. HYDROXYCHLOROQUINE [Suspect]
     Active Substance: HYDROXYCHLOROQUINE
  366. HYDROXYCHLOROQUINE [Suspect]
     Active Substance: HYDROXYCHLOROQUINE
  367. HYDROXYCHLOROQUINE [Suspect]
     Active Substance: HYDROXYCHLOROQUINE
     Route: 048
  368. HYDROXYCHLOROQUINE [Suspect]
     Active Substance: HYDROXYCHLOROQUINE
     Route: 048
  369. HYDROXYCHLOROQUINE [Suspect]
     Active Substance: HYDROXYCHLOROQUINE
     Route: 058
  370. ORENCIA [Suspect]
     Active Substance: ABATACEPT
     Indication: Rheumatoid arthritis
  371. ORENCIA [Suspect]
     Active Substance: ABATACEPT
     Route: 042
  372. ORENCIA [Suspect]
     Active Substance: ABATACEPT
     Dosage: 125 MG, QD
  373. ORENCIA [Suspect]
     Active Substance: ABATACEPT
  374. ORENCIA [Suspect]
     Active Substance: ABATACEPT
  375. ORENCIA [Suspect]
     Active Substance: ABATACEPT
  376. ORENCIA [Suspect]
     Active Substance: ABATACEPT
  377. ORENCIA [Suspect]
     Active Substance: ABATACEPT
  378. ORENCIA [Suspect]
     Active Substance: ABATACEPT
  379. ORENCIA [Suspect]
     Active Substance: ABATACEPT
     Route: 042
  380. ORENCIA [Suspect]
     Active Substance: ABATACEPT
     Route: 058
  381. ORENCIA [Suspect]
     Active Substance: ABATACEPT
     Route: 058
  382. ORENCIA [Suspect]
     Active Substance: ABATACEPT
     Route: 058
  383. ORENCIA [Suspect]
     Active Substance: ABATACEPT
     Route: 050
  384. ORENCIA [Suspect]
     Active Substance: ABATACEPT
     Route: 042
  385. MINOCYCLINE HYDROCHLORIDE [Suspect]
     Active Substance: MINOCYCLINE HYDROCHLORIDE
     Indication: Rheumatoid arthritis
  386. MINOCYCLINE HYDROCHLORIDE [Suspect]
     Active Substance: MINOCYCLINE HYDROCHLORIDE
  387. MINOCYCLINE HYDROCHLORIDE [Suspect]
     Active Substance: MINOCYCLINE HYDROCHLORIDE
  388. MYRBETRIQ [Suspect]
     Active Substance: MIRABEGRON
     Indication: Product used for unknown indication
     Dosage: 1 DOSAGE FORM, QD, TABLET (EXTENDED RELEASE)
  389. MYRBETRIQ [Suspect]
     Active Substance: MIRABEGRON
  390. NAPROXEN [Suspect]
     Active Substance: NAPROXEN
     Indication: Product used for unknown indication
  391. NAPROXEN [Suspect]
     Active Substance: NAPROXEN
     Dosage: 500 MG, QD
  392. NAPROXEN [Suspect]
     Active Substance: NAPROXEN
  393. NAPROXEN [Suspect]
     Active Substance: NAPROXEN
  394. NAPROXEN [Suspect]
     Active Substance: NAPROXEN
  395. NEOMYCIN SULFATE [Suspect]
     Active Substance: NEOMYCIN SULFATE
     Indication: Rheumatoid arthritis
  396. NEOMYCIN SULFATE [Suspect]
     Active Substance: NEOMYCIN SULFATE
  397. NUCALA [Suspect]
     Active Substance: MEPOLIZUMAB
     Indication: Product used for unknown indication
  398. NUCALA [Suspect]
     Active Substance: MEPOLIZUMAB
  399. OXYCODONE TEREPHTHALATE [Suspect]
     Active Substance: OXYCODONE TEREPHTHALATE
     Indication: Product used for unknown indication
  400. OXYCODONE TEREPHTHALATE [Suspect]
     Active Substance: OXYCODONE TEREPHTHALATE
  401. PERIOGARD [Suspect]
     Active Substance: CHLORHEXIDINE GLUCONATE
     Indication: Product used for unknown indication
  402. PERIOGARD [Suspect]
     Active Substance: CHLORHEXIDINE GLUCONATE
  403. RANITIDINE HYDROCHLORIDE [Suspect]
     Active Substance: RANITIDINE HYDROCHLORIDE
     Indication: Product used for unknown indication
  404. CETIRIZINE HYDROCHLORIDE\PSEUDOEPHEDRINE HYDROCHLORIDE [Suspect]
     Active Substance: CETIRIZINE HYDROCHLORIDE\PSEUDOEPHEDRINE HYDROCHLORIDE
     Indication: Rheumatoid arthritis
  405. CETIRIZINE HYDROCHLORIDE\PSEUDOEPHEDRINE HYDROCHLORIDE [Suspect]
     Active Substance: CETIRIZINE HYDROCHLORIDE\PSEUDOEPHEDRINE HYDROCHLORIDE
  406. CETIRIZINE HYDROCHLORIDE\PSEUDOEPHEDRINE HYDROCHLORIDE [Suspect]
     Active Substance: CETIRIZINE HYDROCHLORIDE\PSEUDOEPHEDRINE HYDROCHLORIDE
  407. CETIRIZINE HYDROCHLORIDE\PSEUDOEPHEDRINE HYDROCHLORIDE [Suspect]
     Active Substance: CETIRIZINE HYDROCHLORIDE\PSEUDOEPHEDRINE HYDROCHLORIDE
  408. SIRUKUMAB [Suspect]
     Active Substance: SIRUKUMAB
     Indication: Product used for unknown indication
  409. SIRUKUMAB [Suspect]
     Active Substance: SIRUKUMAB
  410. SIRUKUMAB [Suspect]
     Active Substance: SIRUKUMAB
  411. PHTHALYLSULFATHIAZOLE [Suspect]
     Active Substance: PHTHALYLSULFATHIAZOLE
     Indication: Rheumatoid arthritis
     Dosage: 2000 MG, QD
     Route: 048
  412. PHTHALYLSULFATHIAZOLE [Suspect]
     Active Substance: PHTHALYLSULFATHIAZOLE
     Route: 050
  413. PHTHALYLSULFATHIAZOLE [Suspect]
     Active Substance: PHTHALYLSULFATHIAZOLE
     Route: 050
  414. PHTHALYLSULFATHIAZOLE [Suspect]
     Active Substance: PHTHALYLSULFATHIAZOLE
     Route: 058
  415. PHTHALYLSULFATHIAZOLE [Suspect]
     Active Substance: PHTHALYLSULFATHIAZOLE
     Route: 050
  416. PHTHALYLSULFATHIAZOLE [Suspect]
     Active Substance: PHTHALYLSULFATHIAZOLE
     Route: 050
  417. PHTHALYLSULFATHIAZOLE [Suspect]
     Active Substance: PHTHALYLSULFATHIAZOLE
     Route: 042
  418. PHTHALYLSULFATHIAZOLE [Suspect]
     Active Substance: PHTHALYLSULFATHIAZOLE
     Dosage: 500 MG, QD
     Route: 048
  419. CETIRIZINE HYDROCHLORIDE [Suspect]
     Active Substance: CETIRIZINE HYDROCHLORIDE
     Indication: Rheumatoid arthritis
     Route: 048
  420. CETIRIZINE HYDROCHLORIDE [Suspect]
     Active Substance: CETIRIZINE HYDROCHLORIDE
     Route: 048
  421. CETIRIZINE HYDROCHLORIDE [Suspect]
     Active Substance: CETIRIZINE HYDROCHLORIDE
  422. CETIRIZINE HYDROCHLORIDE [Suspect]
     Active Substance: CETIRIZINE HYDROCHLORIDE
  423. CETIRIZINE HYDROCHLORIDE [Suspect]
     Active Substance: CETIRIZINE HYDROCHLORIDE
  424. CETIRIZINE HYDROCHLORIDE [Suspect]
     Active Substance: CETIRIZINE HYDROCHLORIDE
  425. CETIRIZINE HYDROCHLORIDE [Suspect]
     Active Substance: CETIRIZINE HYDROCHLORIDE
     Route: 048
  426. CETIRIZINE HYDROCHLORIDE [Suspect]
     Active Substance: CETIRIZINE HYDROCHLORIDE
  427. CETIRIZINE HYDROCHLORIDE [Suspect]
     Active Substance: CETIRIZINE HYDROCHLORIDE
  428. CETIRIZINE HYDROCHLORIDE [Suspect]
     Active Substance: CETIRIZINE HYDROCHLORIDE
  429. CETIRIZINE HYDROCHLORIDE [Suspect]
     Active Substance: CETIRIZINE HYDROCHLORIDE
  430. SULFASALAZINE [Suspect]
     Active Substance: SULFASALAZINE
     Indication: Rheumatoid arthritis
     Route: 048
  431. SULFASALAZINE [Suspect]
     Active Substance: SULFASALAZINE
     Route: 048
  432. SULFASALAZINE [Suspect]
     Active Substance: SULFASALAZINE
     Route: 058
  433. SULFASALAZINE [Suspect]
     Active Substance: SULFASALAZINE
     Route: 050
  434. SULFASALAZINE [Suspect]
     Active Substance: SULFASALAZINE
     Route: 058
  435. SULFASALAZINE [Suspect]
     Active Substance: SULFASALAZINE
     Dosage: 1 G, QD
  436. SULFASALAZINE [Suspect]
     Active Substance: SULFASALAZINE
     Route: 048
  437. SULFASALAZINE [Suspect]
     Active Substance: SULFASALAZINE
     Route: 058
  438. SULFASALAZINE [Suspect]
     Active Substance: SULFASALAZINE
     Route: 048
  439. SULFASALAZINE [Suspect]
     Active Substance: SULFASALAZINE
     Dosage: 300 MG, QD
  440. SULFASALAZINE [Suspect]
     Active Substance: SULFASALAZINE
     Dosage: 4G, QD
     Route: 058
  441. SULFASALAZINE [Suspect]
     Active Substance: SULFASALAZINE
     Dosage: 2 DF, QD
     Route: 048
  442. SULFASALAZINE [Suspect]
     Active Substance: SULFASALAZINE
     Dosage: 2 G, QD
  443. SULFASALAZINE [Suspect]
     Active Substance: SULFASALAZINE
     Dosage: 2000 MG, QD
  444. SULFASALAZINE [Suspect]
     Active Substance: SULFASALAZINE
     Route: 048
  445. SULFASALAZINE [Suspect]
     Active Substance: SULFASALAZINE
     Route: 048
  446. SULFASALAZINE [Suspect]
     Active Substance: SULFASALAZINE
     Route: 048
  447. SULFASALAZINE [Suspect]
     Active Substance: SULFASALAZINE
     Route: 048
  448. SIMPONI [Suspect]
     Active Substance: GOLIMUMAB
     Indication: Rheumatoid arthritis
     Route: 058
  449. SIMPONI [Suspect]
     Active Substance: GOLIMUMAB
     Route: 058
  450. SIMPONI [Suspect]
     Active Substance: GOLIMUMAB
     Route: 058
  451. SIMPONI [Suspect]
     Active Substance: GOLIMUMAB
     Route: 058
  452. SIMPONI [Suspect]
     Active Substance: GOLIMUMAB
     Route: 058
  453. SIMPONI [Suspect]
     Active Substance: GOLIMUMAB
     Route: 058
  454. SIMPONI [Suspect]
     Active Substance: GOLIMUMAB
     Route: 058
  455. SIMPONI [Suspect]
     Active Substance: GOLIMUMAB
     Route: 058
  456. SIMPONI [Suspect]
     Active Substance: GOLIMUMAB
     Route: 058
  457. SIMPONI [Suspect]
     Active Substance: GOLIMUMAB
  458. SIMPONI [Suspect]
     Active Substance: GOLIMUMAB
     Route: 058
  459. GOLD SODIUM THIOMALATE [Suspect]
     Active Substance: GOLD SODIUM THIOMALATE
     Indication: Product used for unknown indication
     Route: 050
  460. GOLD SODIUM THIOMALATE [Suspect]
     Active Substance: GOLD SODIUM THIOMALATE
     Route: 030
  461. GOLD SODIUM THIOMALATE [Suspect]
     Active Substance: GOLD SODIUM THIOMALATE
     Route: 050
  462. GOLD SODIUM THIOMALATE [Suspect]
     Active Substance: GOLD SODIUM THIOMALATE
     Route: 048
  463. SULFAMETHOXAZOLE [Suspect]
     Active Substance: SULFAMETHOXAZOLE
     Indication: Product used for unknown indication
  464. SULFAMETHOXAZOLE [Suspect]
     Active Substance: SULFAMETHOXAZOLE
  465. TOCILIZUMAB [Suspect]
     Active Substance: TOCILIZUMAB
     Indication: Rheumatoid arthritis
  466. TOCILIZUMAB [Suspect]
     Active Substance: TOCILIZUMAB
     Route: 050
  467. TOCILIZUMAB [Suspect]
     Active Substance: TOCILIZUMAB
     Route: 050
  468. TOCILIZUMAB [Suspect]
     Active Substance: TOCILIZUMAB
     Route: 050
  469. TOCILIZUMAB [Suspect]
     Active Substance: TOCILIZUMAB
     Route: 042
  470. TOCILIZUMAB [Suspect]
     Active Substance: TOCILIZUMAB
     Route: 058
  471. TOCILIZUMAB [Suspect]
     Active Substance: TOCILIZUMAB
     Route: 042
  472. TOCILIZUMAB [Suspect]
     Active Substance: TOCILIZUMAB
     Dosage: 10 MG, QD
  473. TOCILIZUMAB [Suspect]
     Active Substance: TOCILIZUMAB
     Dosage: 10 MG, QD
     Route: 048
  474. TOCILIZUMAB [Suspect]
     Active Substance: TOCILIZUMAB
     Dosage: 10 MG, QD
  475. TOCILIZUMAB [Suspect]
     Active Substance: TOCILIZUMAB
     Route: 042
  476. TOCILIZUMAB [Suspect]
     Active Substance: TOCILIZUMAB
     Route: 058
  477. TOCILIZUMAB [Suspect]
     Active Substance: TOCILIZUMAB
     Route: 058
  478. TOCILIZUMAB [Suspect]
     Active Substance: TOCILIZUMAB
     Route: 058
  479. XELJANZ [Suspect]
     Active Substance: TOFACITINIB CITRATE
     Indication: Rheumatoid arthritis
     Dosage: 20 MG, QD
     Route: 048
  480. XELJANZ [Suspect]
     Active Substance: TOFACITINIB CITRATE
     Dosage: 10 MG, QD
     Route: 048
  481. XELJANZ [Suspect]
     Active Substance: TOFACITINIB CITRATE
     Route: 048
  482. XELJANZ [Suspect]
     Active Substance: TOFACITINIB CITRATE
     Dosage: 10 MG, QD
  483. XELJANZ [Suspect]
     Active Substance: TOFACITINIB CITRATE
     Dosage: 20 MG, QD
     Route: 048
  484. USTEKINUMAB [Suspect]
     Active Substance: USTEKINUMAB
     Indication: Rheumatoid arthritis
  485. USTEKINUMAB [Suspect]
     Active Substance: USTEKINUMAB
     Route: 058
  486. USTEKINUMAB [Suspect]
     Active Substance: USTEKINUMAB
     Route: 058
  487. USTEKINUMAB [Suspect]
     Active Substance: USTEKINUMAB
     Route: 058
  488. USTEKINUMAB [Suspect]
     Active Substance: USTEKINUMAB
     Route: 058
  489. USTEKINUMAB [Suspect]
     Active Substance: USTEKINUMAB
     Route: 058
  490. USTEKINUMAB [Suspect]
     Active Substance: USTEKINUMAB
     Route: 058
  491. USTEKINUMAB [Suspect]
     Active Substance: USTEKINUMAB
  492. CHOLECALCIFEROL [Suspect]
     Active Substance: CHOLECALCIFEROL
     Indication: Product used for unknown indication
  493. CHOLECALCIFEROL [Suspect]
     Active Substance: CHOLECALCIFEROL
  494. PSEUDOEPHEDRINE HYDROCHLORIDE [Suspect]
     Active Substance: PSEUDOEPHEDRINE HYDROCHLORIDE
     Indication: Rheumatoid arthritis
  495. PSEUDOEPHEDRINE HYDROCHLORIDE [Suspect]
     Active Substance: PSEUDOEPHEDRINE HYDROCHLORIDE
  496. PSEUDOEPHEDRINE HYDROCHLORIDE [Suspect]
     Active Substance: PSEUDOEPHEDRINE HYDROCHLORIDE
  497. VITAMIN C [Suspect]
     Active Substance: ASCORBIC ACID
     Indication: Product used for unknown indication
  498. VITAMIN C [Suspect]
     Active Substance: ASCORBIC ACID
  499. VITAMIN C [Suspect]
     Active Substance: ASCORBIC ACID
     Indication: Product used for unknown indication
  500. VITAMIN C [Suspect]
     Active Substance: ASCORBIC ACID
  501. VITAMIN C [Suspect]
     Active Substance: ASCORBIC ACID
  502. VITAMIN C [Suspect]
     Active Substance: ASCORBIC ACID
  503. VITAMIN C [Suspect]
     Active Substance: ASCORBIC ACID
  504. VITAMIN C [Suspect]
     Active Substance: ASCORBIC ACID
  505. VITAMIN C [Suspect]
     Active Substance: ASCORBIC ACID
  506. REMICADE [Suspect]
     Active Substance: INFLIXIMAB
     Indication: Rheumatoid arthritis
     Dosage: 500 MG, QD
     Route: 042
  507. REMICADE [Suspect]
     Active Substance: INFLIXIMAB
     Route: 050
  508. REMICADE [Suspect]
     Active Substance: INFLIXIMAB
     Route: 050
  509. REMICADE [Suspect]
     Active Substance: INFLIXIMAB
     Route: 050
  510. REMICADE [Suspect]
     Active Substance: INFLIXIMAB
     Route: 042
  511. REMICADE [Suspect]
     Active Substance: INFLIXIMAB
     Route: 050
  512. REMICADE [Suspect]
     Active Substance: INFLIXIMAB
     Route: 050
  513. REMICADE [Suspect]
     Active Substance: INFLIXIMAB
     Route: 050
  514. REMICADE [Suspect]
     Active Substance: INFLIXIMAB
     Route: 058
  515. REMICADE [Suspect]
     Active Substance: INFLIXIMAB
     Route: 042
  516. REMICADE [Suspect]
     Active Substance: INFLIXIMAB
     Route: 050
  517. REMICADE [Suspect]
     Active Substance: INFLIXIMAB
     Route: 050
  518. REMICADE [Suspect]
     Active Substance: INFLIXIMAB
     Dosage: 500 MG, QD
     Route: 050
  519. REMICADE [Suspect]
     Active Substance: INFLIXIMAB
     Route: 050
  520. REMICADE [Suspect]
     Active Substance: INFLIXIMAB
     Dosage: POWDER FOR SOLUTION INTRAVENOUS, INTRAVENOUS BOLUS
  521. CETIRIZINE HYDROCHLORIDE [Suspect]
     Active Substance: CETIRIZINE HYDROCHLORIDE
     Indication: Rheumatoid arthritis
  522. CETIRIZINE HYDROCHLORIDE [Suspect]
     Active Substance: CETIRIZINE HYDROCHLORIDE
  523. CETIRIZINE HYDROCHLORIDE [Suspect]
     Active Substance: CETIRIZINE HYDROCHLORIDE
  524. CETIRIZINE HYDROCHLORIDE [Suspect]
     Active Substance: CETIRIZINE HYDROCHLORIDE
  525. CETIRIZINE HYDROCHLORIDE [Suspect]
     Active Substance: CETIRIZINE HYDROCHLORIDE
     Route: 048
  526. CETIRIZINE HYDROCHLORIDE [Suspect]
     Active Substance: CETIRIZINE HYDROCHLORIDE
  527. CETIRIZINE HYDROCHLORIDE [Suspect]
     Active Substance: CETIRIZINE HYDROCHLORIDE
  528. CETIRIZINE HYDROCHLORIDE [Suspect]
     Active Substance: CETIRIZINE HYDROCHLORIDE
     Route: 048
  529. CETIRIZINE HYDROCHLORIDE [Suspect]
     Active Substance: CETIRIZINE HYDROCHLORIDE
     Route: 048
  530. CETIRIZINE HYDROCHLORIDE [Suspect]
     Active Substance: CETIRIZINE HYDROCHLORIDE
  531. CETIRIZINE HYDROCHLORIDE [Suspect]
     Active Substance: CETIRIZINE HYDROCHLORIDE
     Route: 048
  532. COSENTYX [Suspect]
     Active Substance: SECUKINUMAB
     Indication: Psoriatic arthropathy
  533. COSENTYX [Suspect]
     Active Substance: SECUKINUMAB
  534. COSENTYX [Suspect]
     Active Substance: SECUKINUMAB
  535. COSENTYX [Suspect]
     Active Substance: SECUKINUMAB
  536. COSENTYX [Suspect]
     Active Substance: SECUKINUMAB
  537. COSENTYX [Suspect]
     Active Substance: SECUKINUMAB
  538. CELECOXIB [Suspect]
     Active Substance: CELECOXIB
     Indication: Product used for unknown indication
     Dosage: 1 DOSAGE FORM, QD
  539. CELECOXIB [Suspect]
     Active Substance: CELECOXIB
     Dosage: 2 DOSAGE FORM, QD
     Route: 048
  540. CLIOQUINOL\FLUMETHASONE [Suspect]
     Active Substance: CLIOQUINOL\FLUMETHASONE
     Indication: Product used for unknown indication
     Route: 058
  541. CLIOQUINOL\FLUMETHASONE [Suspect]
     Active Substance: CLIOQUINOL\FLUMETHASONE
     Route: 058
  542. CLIOQUINOL\FLUMETHASONE [Suspect]
     Active Substance: CLIOQUINOL\FLUMETHASONE
  543. CLIOQUINOL\FLUMETHASONE [Suspect]
     Active Substance: CLIOQUINOL\FLUMETHASONE
  544. YEAST [Suspect]
     Active Substance: YEAST
     Indication: Rheumatoid arthritis
  545. TUMS ULTRA [Suspect]
     Active Substance: CALCIUM CARBONATE
     Indication: Product used for unknown indication
  546. DESOGESTREL\ETHINYL ESTRADIOL [Concomitant]
     Active Substance: DESOGESTREL\ETHINYL ESTRADIOL
     Indication: Product used for unknown indication
  547. DESOGESTREL\ETHINYL ESTRADIOL [Concomitant]
     Active Substance: DESOGESTREL\ETHINYL ESTRADIOL
  548. STELARA [Suspect]
     Active Substance: USTEKINUMAB
     Indication: Rheumatoid arthritis
  549. STELARA [Suspect]
     Active Substance: USTEKINUMAB
     Route: 058
  550. STELARA [Suspect]
     Active Substance: USTEKINUMAB
     Route: 058
  551. STELARA [Suspect]
     Active Substance: USTEKINUMAB
     Route: 058
  552. STELARA [Suspect]
     Active Substance: USTEKINUMAB
     Route: 058
  553. LEFLUNOMIDE [Suspect]
     Active Substance: LEFLUNOMIDE
     Indication: Rheumatoid arthritis
     Dosage: 20 MG
     Route: 048
  554. LEFLUNOMIDE [Suspect]
     Active Substance: LEFLUNOMIDE
     Dosage: 20 MG, QD
  555. LEFLUNOMIDE [Suspect]
     Active Substance: LEFLUNOMIDE
  556. LEFLUNOMIDE [Suspect]
     Active Substance: LEFLUNOMIDE
     Route: 048
  557. LEFLUNOMIDE [Suspect]
     Active Substance: LEFLUNOMIDE
  558. LEFLUNOMIDE [Suspect]
     Active Substance: LEFLUNOMIDE
  559. LEFLUNOMIDE [Suspect]
     Active Substance: LEFLUNOMIDE
     Dosage: 10 MG, QD
  560. LEFLUNOMIDE [Suspect]
     Active Substance: LEFLUNOMIDE
  561. ALENDRONIC ACID [Suspect]
     Active Substance: ALENDRONIC ACID
     Indication: Rheumatoid arthritis
     Route: 050
  562. ALENDRONIC ACID [Suspect]
     Active Substance: ALENDRONIC ACID
     Route: 048
  563. METFORMIN [Suspect]
     Active Substance: METFORMIN HYDROCHLORIDE
     Indication: Product used for unknown indication
     Route: 050
  564. METFORMIN [Suspect]
     Active Substance: METFORMIN HYDROCHLORIDE
     Route: 042
  565. VITAMIN A [Suspect]
     Active Substance: VITAMIN A
     Indication: Product used for unknown indication
  566. VITAMIN D3 [Suspect]
     Active Substance: CHOLECALCIFEROL
     Indication: Product used for unknown indication
  567. VITAMIN D3 [Suspect]
     Active Substance: CHOLECALCIFEROL
     Indication: Rheumatoid arthritis
     Route: 048

REACTIONS (35)
  - Psoriatic arthropathy [Fatal]
  - Treatment failure [Fatal]
  - Therapeutic product effect incomplete [Fatal]
  - Product use in unapproved indication [Fatal]
  - Contraindicated product administered [Fatal]
  - Product use issue [Fatal]
  - Therapeutic product effect decreased [Fatal]
  - Swelling [Fatal]
  - Injection site reaction [Fatal]
  - Ill-defined disorder [Fatal]
  - Drug ineffective [Fatal]
  - Type 2 diabetes mellitus [Fatal]
  - Rheumatic fever [Fatal]
  - Sleep disorder [Fatal]
  - Off label use [Fatal]
  - Pericarditis [Fatal]
  - Rash [Fatal]
  - Rheumatoid arthritis [Fatal]
  - C-reactive protein increased [Fatal]
  - Nausea [Fatal]
  - Wound [Fatal]
  - C-reactive protein abnormal [Fatal]
  - Drug hypersensitivity [Fatal]
  - Pain [Fatal]
  - Confusional state [Fatal]
  - Onychomadesis [Fatal]
  - Dyspnoea [Fatal]
  - Systemic lupus erythematosus [Fatal]
  - Synovitis [Fatal]
  - Infusion related reaction [Fatal]
  - Pemphigus [Fatal]
  - Overdose [Fatal]
  - Underdose [Fatal]
  - Intentional product use issue [Fatal]
  - Onychomycosis [Fatal]
